FAERS Safety Report 9637432 (Version 3)
Quarter: 2014Q4

REPORT INFORMATION
  Report Type: Spontaneous
  Country: US (occurrence: None)
  Receive Date: 20131018
  Receipt Date: 20141119
  Transmission Date: 20150529
  Serious: Yes (Other)
  Sender: FDA-Public Use
  Company Number: ADR-2013-01864

PATIENT
  Sex: Male

DRUGS (1)
  1. LIORESAL [Suspect]
     Active Substance: BACLOFEN
     Indication: MUSCLE SPASTICITY
     Dosage: 96 MCG/DAY

REACTIONS (5)
  - Device dislocation [None]
  - Drug withdrawal syndrome [None]
  - Muscle spasticity [None]
  - Discomfort [None]
  - Hyperhidrosis [None]
